FAERS Safety Report 4389930-7 (Version None)
Quarter: 2004Q2

REPORT INFORMATION
  Report Type: 
  Country: None (occurrence: None)
  Receive Date: 20040628
  Receipt Date: 20040614
  Transmission Date: 20050107
  Serious: Yes (Death)
  Sender: FDA-Public Use
  Company Number: 04P-163-0263669-00

PATIENT
  Age: 73 Year
  Sex: Male

DRUGS (1)
  1. HUMIRA 40 MG/0.8 ML PREFILLED SYRINGE (HUMIRA) (ADALIMUMB) [Suspect]
     Indication: RHEUMATOID ARTHRITIS
     Dosage: 40 MG, 1 IN 2 WK, SUBCUTANEOUS
     Route: 058
     Dates: start: 20030801

REACTIONS (2)
  - ACUTE CORONARY SYNDROME [None]
  - MYOCARDIAL ISCHAEMIA [None]
